FAERS Safety Report 16989537 (Version 1)
Quarter: 2019Q4

REPORT INFORMATION
  Report Type: Spontaneous
  Country: CN (occurrence: CN)
  Receive Date: 20191104
  Receipt Date: 20191104
  Transmission Date: 20200122
  Serious: Yes (Other)
  Sender: FDA-Public Use
  Company Number: CN-PFIZER INC-2019468899

PATIENT
  Sex: Female

DRUGS (1)
  1. HEMABATE [Suspect]
     Active Substance: CARBOPROST TROMETHAMINE
     Indication: UTERINE HYPOTONUS
     Dosage: 250 UG, UNK
     Dates: start: 20191027

REACTIONS (6)
  - Blood pressure decreased [Recovered/Resolved]
  - Pallor [Unknown]
  - Diarrhoea [Unknown]
  - Depressed mood [Unknown]
  - Abdominal pain upper [Recovering/Resolving]
  - Heart rate increased [Unknown]

NARRATIVE: CASE EVENT DATE: 20191027
